FAERS Safety Report 9173750 (Version 1)
Quarter: 2013Q1

REPORT INFORMATION
  Report Type: Spontaneous
  Country: US (occurrence: None)
  Receive Date: 20130314
  Receipt Date: 20130314
  Transmission Date: 20140127
  Serious: No
  Sender: FDA-Public Use
  Company Number: 2135225-2013-00029

PATIENT
  Sex: Male

DRUGS (2)
  1. ASCLERA [Suspect]
     Indication: SCLEROTHERAPY
     Dosage: INJECTIONS
     Dates: end: 20130212
  2. ASCLERA [Suspect]
     Indication: SPIDER VEIN
     Dosage: INJECTIONS
     Dates: end: 20130212

REACTIONS (4)
  - Sensory disturbance [None]
  - Tenderness [None]
  - Staphylococcal skin infection [None]
  - Skin ulcer [None]
